FAERS Safety Report 22044255 (Version 1)
Quarter: 2023Q1

REPORT INFORMATION
  Report Type: Other
  Country: CA (occurrence: None)
  Receive Date: 20230228
  Receipt Date: 20230228
  Transmission Date: 20230417
  Serious: Yes (Other)
  Sender: FDA-Public Use
  Company Number: CA-ROCHE-2894804

PATIENT
  Sex: Female

DRUGS (4)
  1. OCREVUS [Suspect]
     Active Substance: OCRELIZUMAB
     Indication: Relapsing-remitting multiple sclerosis
     Dosage: 300 MG AT DAY 0 AND 14, THEN 600 MG EVERY 6 MONTH
     Route: 042
     Dates: start: 20210806
  2. PREGABALIN [Concomitant]
     Active Substance: PREGABALIN
  3. TYLENOL [Concomitant]
     Active Substance: ACETAMINOPHEN
  4. GABAPENTIN [Concomitant]
     Active Substance: GABAPENTIN

REACTIONS (14)
  - Multiple sclerosis [Not Recovered/Not Resolved]
  - Hypoaesthesia [Not Recovered/Not Resolved]
  - Gait disturbance [Not Recovered/Not Resolved]
  - Infusion related reaction [Recovered/Resolved]
  - Pain [Not Recovered/Not Resolved]
  - Balance disorder [Recovered/Resolved]
  - Urinary incontinence [Recovered/Resolved]
  - Confusional state [Unknown]
  - Platelet count increased [Not Recovered/Not Resolved]
  - Kidney small [Not Recovered/Not Resolved]
  - Thyroid disorder [Unknown]
  - Impatience [Unknown]
  - Oral herpes [Recovered/Resolved]
  - COVID-19 [Unknown]
